FAERS Safety Report 4762152-3 (Version None)
Quarter: 2005Q3

REPORT INFORMATION
  Report Type: 
  Country: None (occurrence: None)
  Receive Date: 20050906
  Receipt Date: 20050906
  Transmission Date: 20060218
  Serious: Yes (Life-Threatening)
  Sender: FDA-Public Use
  Company Number: None

PATIENT
  Age: 87 Year
  Sex: Male

DRUGS (1)
  1. CEFTRIAXONE [Suspect]
     Indication: ENDOCARDITIS
     Dosage: 2000 MG Q 24 H IV
     Route: 042
     Dates: start: 20050628, end: 20050705

REACTIONS (1)
  - NEUTROPENIA [None]
